FAERS Safety Report 7671528-6 (Version None)
Quarter: 2011Q3

REPORT INFORMATION
  Report Type: 
  Country: None (occurrence: None)
  Receive Date: 20110809
  Receipt Date: 20110809
  Transmission Date: 20111222
  Serious: No
  Sender: FDA-Public Use
  Company Number: None

PATIENT
  Age: 40 Year
  Sex: Female
  Weight: 57.152 kg

DRUGS (1)
  1. BOTOX [Suspect]

REACTIONS (6)
  - PAIN IN EXTREMITY [None]
  - PAIN [None]
  - PYREXIA [None]
  - INFLUENZA LIKE ILLNESS [None]
  - FATIGUE [None]
  - LYMPHADENOPATHY [None]
